FAERS Safety Report 5969073-9 (Version None)
Quarter: 2008Q4

REPORT INFORMATION
  Report Type: 
  Country: None (occurrence: None)
  Receive Date: 20081126
  Receipt Date: 20080815
  Transmission Date: 20090506
  Serious: No
  Sender: FDA-Public Use
  Company Number: US-ABBOTT-08P-163-0465332-00

PATIENT
  Sex: Male
  Weight: 98.518 kg

DRUGS (7)
  1. SIMCOR [Suspect]
     Indication: HIGH DENSITY LIPOPROTEIN DECREASED
     Dosage: 750/20MG TWICE DAILY
     Dates: start: 20080716
  2. CLOPIDOGREL [Concomitant]
     Indication: CORONARY ARTERIAL STENT INSERTION
     Route: 048
     Dates: start: 20080219
  3. NETOPROLOL [Concomitant]
     Indication: HYPERTENSION
     Route: 048
     Dates: start: 20080216
  4. LISINOPRIL [Concomitant]
     Indication: HYPERTENSION
     Route: 048
     Dates: start: 20040101
  5. CLONIDINE [Concomitant]
     Indication: BLOOD PRESSURE
     Route: 048
     Dates: start: 20020101
  6. ACETYLSALICYLIC ACID SRT [Concomitant]
     Indication: PROPHYLAXIS
     Route: 048
     Dates: start: 20080216
  7. FISH OIL [Concomitant]
     Indication: RENAL DISORDER
     Route: 048
     Dates: start: 20040101

REACTIONS (2)
  - BURNING SENSATION [None]
  - RESTLESSNESS [None]
